FAERS Safety Report 17322640 (Version 1)
Quarter: 2020Q1

REPORT INFORMATION
  Report Type: Spontaneous
  Country: GB (occurrence: GB)
  Receive Date: 20200127
  Receipt Date: 20200127
  Transmission Date: 20200409
  Serious: Yes (Hospitalization, Other)
  Sender: FDA-Public Use
  Company Number: GB-TEVA-2020-GB-1173878

PATIENT
  Age: 71 Year
  Sex: Male

DRUGS (10)
  1. DIGOXIN. [Concomitant]
     Active Substance: DIGOXIN
  2. ATORVASTATIN [Concomitant]
     Active Substance: ATORVASTATIN
  3. ALLOPURINOL. [Concomitant]
     Active Substance: ALLOPURINOL
  4. RIVAROXABAN [Concomitant]
     Active Substance: RIVAROXABAN
     Dates: end: 20190702
  5. HUMULIN L [Concomitant]
     Active Substance: INSULIN HUMAN
  6. THIAMINE. [Concomitant]
     Active Substance: THIAMINE
  7. BISOPROLOL [Concomitant]
     Active Substance: BISOPROLOL
  8. ZOPICLONE [Concomitant]
     Active Substance: ZOPICLONE
  9. RAMIPRIL. [Suspect]
     Active Substance: RAMIPRIL
     Indication: HYPERTENSION
     Dosage: 2.5 MG
     Route: 048
     Dates: end: 20190702
  10. NOVORAPID [Concomitant]
     Active Substance: INSULIN ASPART

REACTIONS (5)
  - Acute kidney injury [Recovered/Resolved]
  - Nausea [Unknown]
  - Sepsis [Unknown]
  - Cellulitis [Unknown]
  - Vomiting [Unknown]

NARRATIVE: CASE EVENT DATE: 20190630
